FAERS Safety Report 7097109-3 (Version None)
Quarter: 2010Q4

REPORT INFORMATION
  Report Type: 
  Country: None (occurrence: None)
  Receive Date: 20101111
  Receipt Date: 20101108
  Transmission Date: 20110411
  Serious: Yes (Hospitalization, Other)
  Sender: FDA-Public Use
  Company Number: US-PFIZER INC-2010103482

PATIENT
  Sex: Female

DRUGS (4)
  1. CHANTIX [Suspect]
     Indication: SMOKING CESSATION THERAPY
     Dosage: 10 MG, UNK
     Dates: start: 20070406
  2. NAPROXEN [Concomitant]
     Indication: MYALGIA
     Dosage: UNK
     Dates: start: 20061011
  3. NAPROXEN [Concomitant]
     Indication: PAIN
  4. AMOXICILLIN [Concomitant]
     Indication: INFECTION
     Dosage: UNK
     Dates: start: 20050307, end: 20080218

REACTIONS (3)
  - INTENTIONAL OVERDOSE [None]
  - MAJOR DEPRESSION [None]
  - SUICIDE ATTEMPT [None]
